FAERS Safety Report 8981435 (Version 1)
Quarter: 2012Q4

REPORT INFORMATION
  Report Type: 
  Country: DE (occurrence: DE)
  Receive Date: 20121221
  Receipt Date: 20121221
  Transmission Date: 20130627
  Serious: Yes (Other)
  Sender: FDA-Public Use
  Company Number: DE-JNJFOC-20121208165

PATIENT
  Sex: Male

DRUGS (2)
  1. XARELTO [Suspect]
     Indication: CEREBROVASCULAR ACCIDENT PROPHYLAXIS
     Route: 048
     Dates: start: 2012
  2. XARELTO [Suspect]
     Indication: ATRIAL FIBRILLATION
     Route: 048
     Dates: start: 2012

REACTIONS (8)
  - Cardiac output decreased [Unknown]
  - Pulmonary oedema [Unknown]
  - Dyspnoea [Unknown]
  - Restlessness [Unknown]
  - Hypertension [Unknown]
  - Cardiac disorder [Unknown]
  - Sleep disorder [Unknown]
  - General physical condition abnormal [Unknown]
